FAERS Safety Report 4626226-X (Version None)
Quarter: 2005Q2

REPORT INFORMATION
  Report Type: 
  Country: None (occurrence: None)
  Receive Date: 20050404
  Receipt Date: 20050322
  Transmission Date: 20051028
  Serious: Yes (Hospitalization)
  Sender: FDA-Public Use
  Company Number: PL-JNJFOC-20050306666

PATIENT
  Sex: Female
  Weight: 60 kg

DRUGS (1)
  1. ORTHO EVRA [Suspect]
     Indication: CONTRACEPTION
     Route: 062

REACTIONS (6)
  - ASTHENIA [None]
  - CHILLS [None]
  - DIARRHOEA [None]
  - NAUSEA [None]
  - OVARIAN CYST [None]
  - VOMITING [None]
